FAERS Safety Report 4492550-7 (Version None)
Quarter: 2004Q4

REPORT INFORMATION
  Report Type: 
  Country: None (occurrence: None)
  Receive Date: 20041102
  Receipt Date: 20041102
  Transmission Date: 20050328
  Serious: Yes (Other)
  Sender: FDA-Public Use
  Company Number: None

PATIENT
  Age: 65 Year
  Sex: Female
  Weight: 93.441 kg

DRUGS (1)
  1. TRICOR [Suspect]
     Indication: HYPERLIPIDAEMIA
     Dosage: PO QD
     Route: 048

REACTIONS (1)
  - RENAL IMPAIRMENT [None]
